FAERS Safety Report 4983654-0 (Version None)
Quarter: 2006Q2

REPORT INFORMATION
  Report Type: 
  Country: None (occurrence: None)
  Receive Date: 20060425
  Receipt Date: 20060425
  Transmission Date: 20061013
  Serious: Yes (Hospitalization)
  Sender: FDA-Public Use
  Company Number: None

PATIENT
  Age: 84 Year
  Sex: Male
  Weight: 116.1208 kg

DRUGS (8)
  1. ATENOLOL [Suspect]
  2. TERAZOSIN 10 MG QHS [Suspect]
  3. ISOSORBIDE MONONITRATE [Suspect]
  4. FUROSEMIDE [Suspect]
  5. VALSARTAN [Suspect]
  6. . [Concomitant]
  7. . [Concomitant]
  8. . [Concomitant]

REACTIONS (3)
  - BRADYCARDIA [None]
  - HYPERKALAEMIA [None]
  - HYPOTENSION [None]
